FAERS Safety Report 13966293 (Version 2)
Quarter: 2017Q4

REPORT INFORMATION
  Report Type: Spontaneous
  Country: FR (occurrence: FR)
  Receive Date: 20170913
  Receipt Date: 20171207
  Transmission Date: 20180320
  Serious: Yes (Other)
  Sender: FDA-Public Use
  Company Number: FR-MERCK KGAA-2026056

PATIENT
  Age: 62 Year
  Sex: Female
  Weight: 55 kg

DRUGS (1)
  1. NOVOTHYROX [Suspect]
     Active Substance: LEVOTHYROXINE SODIUM
     Indication: THYROIDECTOMY
     Route: 048
     Dates: start: 201705

REACTIONS (6)
  - Diffuse alopecia [Recovered/Resolved]
  - Hypersensitivity [Recovered/Resolved]
  - Fatigue [Recovered/Resolved]
  - Blood thyroid stimulating hormone normal [Unknown]
  - Pain [Recovered/Resolved]
  - Abdominal pain [Recovered/Resolved]

NARRATIVE: CASE EVENT DATE: 201706
